FAERS Safety Report 8924489 (Version 2)
Quarter: 2013Q1

REPORT INFORMATION
  Report Type: Report from Study
  Country: GB (occurrence: GB)
  Receive Date: 20121126
  Receipt Date: 20130128
  Transmission Date: 20140127
  Serious: Yes (Death)
  Sender: FDA-Public Use
  Company Number: GB-CELGENEUS-167-C5013-12113005

PATIENT
  Age: 71 Year
  Sex: Male
  Weight: 75.9 kg

DRUGS (1)
  1. GEMCITABINE [Suspect]
     Indication: DIFFUSE LARGE B-CELL LYMPHOMA
     Route: 065
     Dates: start: 20120905, end: 20121003

REACTIONS (1)
  - Lymphoma [Fatal]
